FAERS Safety Report 9644297 (Version 1)
Quarter: 2013Q4

REPORT INFORMATION
  Report Type: Spontaneous
  Country: IT (occurrence: IT)
  Receive Date: 20131025
  Receipt Date: 20131025
  Transmission Date: 20140711
  Serious: Yes (Hospitalization)
  Sender: FDA-Public Use
  Company Number: IT-009507513-1310ITA008969

PATIENT
  Sex: 0

DRUGS (2)
  1. SIMVASTATIN [Suspect]
     Dosage: TOTAL DAILY DOSE: 40 MG
     Route: 048
  2. AMLODIPINE [Interacting]

REACTIONS (1)
  - Drug interaction [Unknown]
